FAERS Safety Report 16492534 (Version 1)
Quarter: 2019Q2

REPORT INFORMATION
  Report Type: Spontaneous
  Country: GB (occurrence: GB)
  Receive Date: 20190628
  Receipt Date: 20190628
  Transmission Date: 20190711
  Serious: Yes (Congenital Anomaly)
  Sender: FDA-Public Use
  Company Number: PHHY2019GB143660

PATIENT

DRUGS (1)
  1. LEVETIRACETAM. [Suspect]
     Active Substance: LEVETIRACETAM
     Indication: PRODUCT USED FOR UNKNOWN INDICATION
     Route: 064

REACTIONS (6)
  - Jaundice [Unknown]
  - Intraventricular haemorrhage [Unknown]
  - Hydrocele [Unknown]
  - Periventricular leukomalacia [Unknown]
  - Premature baby [Unknown]
  - Maternal exposure during pregnancy [Recovered/Resolved]
